FAERS Safety Report 7377568-9 (Version None)
Quarter: 2011Q1

REPORT INFORMATION
  Report Type: 
  Country: None (occurrence: None)
  Receive Date: 20110328
  Receipt Date: 20110318
  Transmission Date: 20110831
  Serious: Yes (Death, Hospitalization)
  Sender: FDA-Public Use
  Company Number: US-CELGENEUS-163-21880-11032208

PATIENT
  Sex: Female

DRUGS (5)
  1. METOPROLOL [Concomitant]
     Route: 065
  2. SPIRONOLACTONE [Concomitant]
     Route: 065
  3. MUCINEX [Concomitant]
     Route: 065
  4. REVLIMID [Suspect]
     Indication: MULTIPLE MYELOMA
     Dosage: 10 MILLIGRAM
     Route: 048
     Dates: start: 20101228, end: 20110215
  5. LASIX [Concomitant]
     Route: 065

REACTIONS (3)
  - RENAL FAILURE [None]
  - CARDIAC FAILURE CONGESTIVE [None]
  - DEATH [None]
